FAERS Safety Report 19486784 (Version 4)
Quarter: 2021Q3

REPORT INFORMATION
  Report Type: Report from Study
  Country: IL (occurrence: IL)
  Receive Date: 20210702
  Receipt Date: 20210716
  Transmission Date: 20211014
  Serious: Yes (Other)
  Sender: FDA-Public Use
  Company Number: IL-EISAI MEDICAL RESEARCH-EC-2021-095484

PATIENT
  Age: 52 Year
  Sex: Male
  Weight: 77 kg

DRUGS (7)
  1. LENVATINIB [Suspect]
     Active Substance: LENVATINIB
     Route: 048
     Dates: start: 20210620, end: 20210620
  2. PROZAC [Concomitant]
     Active Substance: FLUOXETINE HYDROCHLORIDE
     Dates: start: 19960101
  3. MK?1308 [Suspect]
     Active Substance: QUAVONLIMAB
     Indication: MALIGNANT MELANOMA
     Dosage: CO?FORMULATED (MK?1308 25 MG (+) MK?3475 400 MG)
     Route: 041
     Dates: start: 20210531, end: 20210531
  4. OPTALGIN [Concomitant]
     Active Substance: METAMIZOLE
     Dates: start: 20210610
  5. OPTALGIN [Concomitant]
     Active Substance: METAMIZOLE
     Dates: start: 20210620, end: 20210620
  6. LENVATINIB [Suspect]
     Active Substance: LENVATINIB
     Indication: MALIGNANT MELANOMA
     Route: 048
     Dates: start: 20210531, end: 20210612
  7. PEMBROLIZUMAB. [Suspect]
     Active Substance: PEMBROLIZUMAB

REACTIONS (1)
  - Drug reaction with eosinophilia and systemic symptoms [Recovered/Resolved]

NARRATIVE: CASE EVENT DATE: 20210620
